FAERS Safety Report 22343834 (Version 1)
Quarter: 2023Q2

REPORT INFORMATION
  Report Type: Spontaneous
  Country: RS (occurrence: RS)
  Receive Date: 20230519
  Receipt Date: 20230519
  Transmission Date: 20230722
  Serious: Yes (Hospitalization, Other)
  Sender: FDA-Public Use
  Company Number: RS-Inventia-000628

PATIENT
  Age: 71 Year
  Sex: Female

DRUGS (6)
  1. DULOXETINE [Interacting]
     Active Substance: DULOXETINE
     Indication: Depressed mood
  2. RASAGILINE [Interacting]
     Active Substance: RASAGILINE
     Indication: Parkinson^s disease
  3. LEVODOPA [Concomitant]
     Active Substance: LEVODOPA
     Indication: Parkinson^s disease
     Dosage: IN FIVE DOSES
  4. BENSERAZIDE [Concomitant]
     Active Substance: BENSERAZIDE
     Indication: Parkinson^s disease
     Dosage: IN FIVE DOSES
  5. ENTACAPONE [Concomitant]
     Active Substance: ENTACAPONE
     Indication: Parkinson^s disease
     Dosage: IN TWO DOSES
  6. ROPINIROLE [Concomitant]
     Active Substance: ROPINIROLE
     Indication: Parkinson^s disease
     Dosage: IN TWO DOSES

REACTIONS (6)
  - Serotonin syndrome [Unknown]
  - Drug interaction [Unknown]
  - Respiratory failure [Unknown]
  - Respiratory acidosis [Unknown]
  - Metabolic acidosis [Unknown]
  - Acute kidney injury [Unknown]
